FAERS Safety Report 10727809 (Version 1)
Quarter: 2015Q1

REPORT INFORMATION
  Report Type: Spontaneous
  Country: US (occurrence: US)
  Receive Date: 20150121
  Receipt Date: 20150121
  Transmission Date: 20150721
  Serious: Yes (Other)
  Sender: FDA-Public Use
  Company Number: US-GLAXOSMITHKLINE-US2015GSK006531

PATIENT
  Age: 22 Year
  Sex: Female

DRUGS (3)
  1. VENTOLIN [Suspect]
     Active Substance: ALBUTEROL SULFATE
     Indication: ASTHMA
     Dosage: 1 PUFF(S), PRN
     Route: 055
  2. FLOVENT [Suspect]
     Active Substance: FLUTICASONE PROPIONATE
     Indication: ASTHMA
     Dosage: 2 PUFF(S), BID
     Route: 055
     Dates: start: 1997, end: 2003
  3. PRENATAL VITAMIN [Concomitant]
     Active Substance: VITAMINS

REACTIONS (10)
  - Bone density decreased [Unknown]
  - Thyroid cancer [Recovered/Resolved]
  - Thyroidectomy [Recovered/Resolved]
  - Anxiety [Recovered/Resolved]
  - Postpartum state [Recovered/Resolved]
  - Local swelling [Recovered/Resolved]
  - Paranoia [Recovered/Resolved]
  - Exposure during pregnancy [Unknown]
  - Live birth [Recovered/Resolved]
  - Breast feeding [Unknown]

NARRATIVE: CASE EVENT DATE: 1997
